FAERS Safety Report 9024580 (Version 2)
Quarter: 2013Q1

REPORT INFORMATION
  Report Type: Spontaneous
  Country: FR (occurrence: FR)
  Receive Date: 20130121
  Receipt Date: 20130128
  Transmission Date: 20140127
  Serious: Yes (Other)
  Sender: FDA-Public Use
  Company Number: FR-BRISTOL-MYERS SQUIBB COMPANY-17280066

PATIENT
  Age: 89 Year
  Sex: Female

DRUGS (2)
  1. COAPROVEL TABS 150MG/12.5MG [Suspect]
     Dosage: 1DF:1TAB, DAILY
     Route: 048
     Dates: start: 20121219
  2. PREVISCAN [Suspect]
     Dosage: 1DF:0.5 DOSE NOT GIVEN
     Route: 048
     Dates: start: 20121219

REACTIONS (1)
  - Wrong drug administered [Recovered/Resolved]
